FAERS Safety Report 4509687-6 (Version None)
Quarter: 2004Q4

REPORT INFORMATION
  Report Type: 
  Country: None (occurrence: None)
  Receive Date: 20041124
  Receipt Date: 20041117
  Transmission Date: 20050328
  Serious: Yes (Hospitalization)
  Sender: FDA-Public Use
  Company Number: US-JNJFOC-20041104500

PATIENT
  Sex: Female

DRUGS (8)
  1. DURAGESIC [Suspect]
     Route: 062
     Dates: start: 20010101
  2. XANAX [Concomitant]
     Dosage: AT BEDTIME
     Route: 049
  3. XANAX [Concomitant]
     Route: 049
  4. LORTAB [Concomitant]
     Dosage: AT BEDTIME
     Route: 049
  5. LORTAB [Concomitant]
     Route: 049
  6. DEPAKOTE [Concomitant]
     Route: 049
  7. PROVENTIL [Concomitant]
     Dosage: 4 TIMES DAILY, AS NEEDED
     Route: 055
  8. COLEX [Concomitant]
     Route: 049

REACTIONS (1)
  - THERAPEUTIC RESPONSE DECREASED [None]
